FAERS Safety Report 14528256 (Version 3)
Quarter: 2018Q4

REPORT INFORMATION
  Report Type: Report from Study
  Country: None (occurrence: DE)
  Receive Date: 20180214
  Receipt Date: 20181018
  Transmission Date: 20190204
  Serious: Yes (Hospitalization, Other)
  Sender: FDA-Public Use
  Company Number: DE-ABBVIE-18K-062-2250819-00

PATIENT
  Age: 58 Year
  Sex: Female

DRUGS (22)
  1. SULFASALAZINE DELAYED-RELEASE [Suspect]
     Active Substance: SULFASALAZINE
     Indication: PRODUCT USED FOR UNKNOWN INDICATION
     Route: 065
     Dates: start: 201709
  2. FOLINIC ACID [Concomitant]
     Active Substance: LEUCOVORIN
     Indication: PRODUCT USED FOR UNKNOWN INDICATION
  3. MTX [Suspect]
     Active Substance: METHOTREXATE SODIUM
     Indication: RHEUMATOID ARTHRITIS
     Route: 065
     Dates: start: 2015, end: 201706
  4. LEFLUNOMIDE. [Suspect]
     Active Substance: LEFLUNOMIDE
     Dosage: UNKNOWN
     Route: 065
     Dates: start: 2017
  5. CYANOCOBALAMIN W/FOLIC ACID [Suspect]
     Active Substance: CYANOCOBALAMIN\FOLIC ACID
     Indication: PRODUCT USED FOR UNKNOWN INDICATION
     Route: 065
  6. COTRIMOXAZOLE [Concomitant]
     Active Substance: SULFAMETHOXAZOLE\TRIMETHOPRIM
     Indication: PRODUCT USED FOR UNKNOWN INDICATION
  7. ANASTROZOL [Concomitant]
     Active Substance: ANASTROZOLE
     Indication: PRODUCT USED FOR UNKNOWN INDICATION
  8. COLECALCIFEROL [Concomitant]
     Active Substance: CHOLECALCIFEROL
     Indication: PRODUCT USED FOR UNKNOWN INDICATION
  9. MABTHERA [Suspect]
     Active Substance: RITUXIMAB
     Indication: PRODUCT USED FOR UNKNOWN INDICATION
     Route: 042
     Dates: start: 201605, end: 201605
  10. PANTOZOL [Concomitant]
     Active Substance: PANTOPRAZOLE SODIUM
     Indication: PRODUCT USED FOR UNKNOWN INDICATION
  11. MABTHERA [Suspect]
     Active Substance: RITUXIMAB
     Route: 042
     Dates: start: 201703
  12. MABTHERA [Suspect]
     Active Substance: RITUXIMAB
     Route: 042
  13. MTX [Suspect]
     Active Substance: METHOTREXATE SODIUM
     Dosage: UNKNOWN
     Route: 065
     Dates: start: 2017
  14. CELECOXIB. [Concomitant]
     Active Substance: CELECOXIB
     Indication: PRODUCT USED FOR UNKNOWN INDICATION
  15. MABTHERA [Suspect]
     Active Substance: RITUXIMAB
     Route: 042
     Dates: start: 201610
  16. HUMIRA [Suspect]
     Active Substance: ADALIMUMAB
     Indication: RHEUMATOID ARTHRITIS
     Route: 058
     Dates: start: 201409, end: 201501
  17. HYDROXYCHLOROQUINE [Concomitant]
     Active Substance: HYDROXYCHLOROQUINE
     Indication: PRODUCT USED FOR UNKNOWN INDICATION
     Dates: start: 201709
  18. TAPENTADOL [Concomitant]
     Active Substance: TAPENTADOL
     Indication: PRODUCT USED FOR UNKNOWN INDICATION
  19. PREDNISOLONE. [Concomitant]
     Active Substance: PREDNISOLONE
     Indication: PRODUCT USED FOR UNKNOWN INDICATION
  20. LEFLUNOMIDE. [Suspect]
     Active Substance: LEFLUNOMIDE
     Indication: RHEUMATOID ARTHRITIS
     Route: 065
     Dates: start: 2017, end: 201706
  21. QUENSYL [Suspect]
     Active Substance: HYDROXYCHLOROQUINE
     Indication: PRODUCT USED FOR UNKNOWN INDICATION
     Dosage: GIVEN 2017,2018
     Route: 065
     Dates: start: 2017
  22. SULFASALAZINE DELAYED-RELEASE [Suspect]
     Active Substance: SULFASALAZINE
     Route: 065
     Dates: start: 2018

REACTIONS (16)
  - Stomatitis [Recovered/Resolved]
  - Deep vein thrombosis [Unknown]
  - Rotator cuff syndrome [Unknown]
  - Breast cancer [Unknown]
  - Vitamin D deficiency [Unknown]
  - Mucosal inflammation [Unknown]
  - Hypogammaglobulinaemia [Unknown]
  - Foot fracture [Unknown]
  - Intervertebral disc protrusion [Unknown]
  - Bacteriuria [Unknown]
  - Stenosis [Unknown]
  - Secondary immunodeficiency [Unknown]
  - Radiculopathy [Unknown]
  - Spinal osteoarthritis [Unknown]
  - Nerve root compression [Unknown]
  - Osteopenia [Unknown]

NARRATIVE: CASE EVENT DATE: 201501
